FAERS Safety Report 9048407 (Version 1)
Quarter: 2013Q1

REPORT INFORMATION
  Report Type: Spontaneous
  Country: US (occurrence: US)
  Receive Date: 20130204
  Receipt Date: 20130204
  Transmission Date: 20140127
  Serious: No
  Sender: FDA-Public Use
  Company Number: US-AMGEN-USASP2013001240

PATIENT
  Age: 55 Year
  Sex: Female

DRUGS (1)
  1. ENBREL [Suspect]
     Indication: PSORIASIS
     Dosage: 50 MG, 2 TIMES/WK
     Dates: start: 20121227

REACTIONS (4)
  - Pruritus generalised [Not Recovered/Not Resolved]
  - Scratch [Recovered/Resolved]
  - Skin haemorrhage [Recovered/Resolved]
  - Injection site bruising [Recovered/Resolved]
